FAERS Safety Report 18331338 (Version 6)
Quarter: 2022Q2

REPORT INFORMATION
  Report Type: Report from Study
  Country: GB (occurrence: GB)
  Receive Date: 20200930
  Receipt Date: 20220603
  Transmission Date: 20220720
  Serious: Yes (Life-Threatening, Hospitalization, Other)
  Sender: FDA-Public Use
  Company Number: None

PATIENT
  Age: 36 Year
  Sex: Female
  Weight: 94.2 kg

DRUGS (20)
  1. METFORMIN [Suspect]
     Active Substance: METFORMIN HYDROCHLORIDE
     Indication: Type 2 diabetes mellitus
     Dosage: 1 GRAM, QD, ALSO OTHER REGIMEN WITH CUMULATIVE DOSE OF 4164.95833 G
     Route: 048
     Dates: start: 20050301
  2. METFORMIN [Suspect]
     Active Substance: METFORMIN HYDROCHLORIDE
     Indication: Polycystic ovaries
     Dosage: 500 MILLIGRAM, QD, 500 MG, QD
     Route: 048
     Dates: start: 20050301
  3. METFORMIN [Suspect]
     Active Substance: METFORMIN HYDROCHLORIDE
     Indication: Type 2 diabetes mellitus
     Dosage: 1 GRAM, QD AND ALSO OTHER REGIMEN WITH CUMULATIVE DOSE OF 4164.95833 G
     Route: 048
     Dates: start: 20050301
  4. METFORMIN [Suspect]
     Active Substance: METFORMIN HYDROCHLORIDE
     Indication: Polycystic ovaries
  5. INSULIN GLARGINE [Suspect]
     Active Substance: INSULIN GLARGINE
     Indication: Type 2 diabetes mellitus
     Dosage: 260 INTERNATIONAL UNIT, QD
     Route: 058
     Dates: start: 20141125
  6. INSULIN GLARGINE [Suspect]
     Active Substance: INSULIN GLARGINE
     Dosage: 290 INTERNATIONAL UNIT, QD
     Route: 058
  7. INSULIN HUMAN [Suspect]
     Active Substance: INSULIN HUMAN
     Indication: Type 2 diabetes mellitus
     Dosage: 260 INTERNATIONAL UNIT, QD, START DATE: 25-NOV-2014
     Route: 058
  8. INSULIN HUMAN [Suspect]
     Active Substance: INSULIN HUMAN
     Dosage: 290 INTERNATIONAL UNIT, QD (DOSE INCREASED)
     Route: 058
  9. APIDRA [Suspect]
     Active Substance: INSULIN GLULISINE
     Indication: Type 2 diabetes mellitus
     Dosage: 10 INTERNATIONAL UNIT, QD (10 U, QD)START DATE: 11-OCT-2016
     Route: 065
     Dates: start: 20161011, end: 2016
  10. APIDRA [Suspect]
     Active Substance: INSULIN GLULISINE
     Dosage: 25 INTERNATIONAL UNIT, QD, START DATE: 11-OCT-2016
     Route: 065
     Dates: start: 20161011, end: 2016
  11. APIDRA [Suspect]
     Active Substance: INSULIN GLULISINE
     Dosage: 10 INTERNATIONAL UNIT, QD, START DATE: 11-OCT-2016 00:00
     Route: 065
  12. NOVORAPID [Suspect]
     Active Substance: INSULIN ASPART
     Indication: Type 2 diabetes mellitus
     Dosage: 105 DOSAGE FORM, QD (105 U, QD)START DATE:20-DEC-2016
     Route: 058
     Dates: start: 20161220
  13. METHYLDOPA [Concomitant]
     Active Substance: METHYLDOPA
     Indication: Hypertension
     Dosage: UNK
  14. DALTEPARIN [Concomitant]
     Active Substance: DALTEPARIN
     Indication: Prophylaxis
     Dosage: UNK (START DATE MAR-2017)
  15. FERROUS SULFATE [Concomitant]
     Active Substance: FERROUS SULFATE
     Indication: Anaemia
     Dosage: UNK (START DATE: 14-MAR-2017)
  16. ASPIRIN [Concomitant]
     Active Substance: ASPIRIN
     Indication: Prophylaxis
     Dosage: UNK (START DATE: OCT-2016)
  17. ASPIRIN [Concomitant]
     Active Substance: ASPIRIN
     Indication: Product used for unknown indication
     Dosage: UNK (START DATE: OCT-2016)
  18. FOLIC ACID [Concomitant]
     Active Substance: FOLIC ACID
     Indication: Product used for unknown indication
     Dosage: UNK
  19. SERTRALINE [Concomitant]
     Active Substance: SERTRALINE HYDROCHLORIDE
     Indication: Mental disorder
     Dosage: UNK
     Dates: start: 20140203
  20. LABETALOL [Concomitant]
     Active Substance: LABETALOL\LABETALOL HYDROCHLORIDE
     Indication: Hypertension
     Dosage: UNK , INFUSION

REACTIONS (6)
  - Acute kidney injury [Unknown]
  - Diabetic ketoacidosis [Recovered/Resolved]
  - Dehydration [Unknown]
  - Hypertension [Unknown]
  - Maternal exposure during pregnancy [Recovered/Resolved]
  - Off label use [Unknown]

NARRATIVE: CASE EVENT DATE: 20160726
